FAERS Safety Report 10716122 (Version 1)
Quarter: 2015Q1

REPORT INFORMATION
  Report Type: Spontaneous
  Country: GB (occurrence: GB)
  Receive Date: 20150116
  Receipt Date: 20150116
  Transmission Date: 20150721
  Serious: Yes (Other)
  Sender: FDA-Public Use
  Company Number: GB-AUROBINDO-AUR-APL-2015-00178

PATIENT
  Age: 61 Year
  Sex: Female
  Weight: 66.67 kg

DRUGS (2)
  1. TERBINAFINE 250MG [Suspect]
     Active Substance: TERBINAFINE
     Indication: FUNGAL INFECTION
     Dosage: 250 MG, ONCE A DAY
     Route: 048
     Dates: start: 20141130, end: 20141219
  2. TERBINAFINE 250MG [Suspect]
     Active Substance: TERBINAFINE
     Indication: LOCALISED INFECTION

REACTIONS (3)
  - Urticaria [Not Recovered/Not Resolved]
  - Rash pruritic [Not Recovered/Not Resolved]
  - Lip swelling [Not Recovered/Not Resolved]

NARRATIVE: CASE EVENT DATE: 20141221
